FAERS Safety Report 12760295 (Version 1)
Quarter: 2016Q3

REPORT INFORMATION
  Report Type: Spontaneous
  Country: FR (occurrence: FR)
  Receive Date: 20160919
  Receipt Date: 20160919
  Transmission Date: 20161109
  Serious: Yes (Hospitalization)
  Sender: FDA-Public Use
  Company Number: FR-PFIZER INC-2016430715

PATIENT
  Age: 82 Year
  Sex: Female

DRUGS (10)
  1. MOGADON [Suspect]
     Active Substance: NITRAZEPAM
     Dosage: UNK UNK, 1X/DAY (EVENING)
     Route: 048
  2. GLYCERYL TRINITRATE [Concomitant]
     Active Substance: NITROGLYCERIN
     Dosage: 1 DF, DAILY
  3. LANTUS [Concomitant]
     Active Substance: INSULIN GLARGINE
  4. SERETIDE [Concomitant]
     Active Substance: FLUTICASONE PROPIONATE\SALMETEROL XINAFOATE
     Dosage: 2 DF, 2X/DAY
  5. ARCOXIA [Concomitant]
     Active Substance: ETORICOXIB
     Dosage: 1 TABLET ON MONDAYS, WEDNESDAYS AND FRIDAYS
  6. NEURONTIN [Suspect]
     Active Substance: GABAPENTIN
     Dosage: 400 MG, UNK
  7. ZALDIAR [Concomitant]
     Active Substance: ACETAMINOPHEN\TRAMADOL HYDROCHLORIDE
     Indication: PAIN
  8. FORLAX [Concomitant]
     Active Substance: POLYETHYLENE GLYCOL 4000
  9. ZAMUDOL [Concomitant]
     Active Substance: TRAMADOL HYDROCHLORIDE
     Dosage: 1 DF, 2X/DAY (MORNING AND EVENING)
  10. LODOZ [Concomitant]
     Active Substance: BISOPROLOL FUMARATE\HYDROCHLOROTHIAZIDE
     Dosage: 1 DF, 1X/DAY

REACTIONS (4)
  - Altered state of consciousness [Recovering/Resolving]
  - Depressed level of consciousness [Recovering/Resolving]
  - Overdose [Unknown]
  - Somnolence [Recovering/Resolving]

NARRATIVE: CASE EVENT DATE: 20160213
